FAERS Safety Report 4281042-6 (Version None)
Quarter: 2004Q1

REPORT INFORMATION
  Report Type: 
  Country: None (occurrence: None)
  Receive Date: 20040129
  Receipt Date: 20031027
  Transmission Date: 20041129
  Serious: No
  Sender: FDA-Public Use
  Company Number: US-BRISTOL-MYERS SQUIBB COMPANY-12420170

PATIENT
  Age: 26 Year
  Sex: Male
  Weight: 95 kg

DRUGS (3)
  1. BLENOXANE [Suspect]
     Indication: TESTIS CANCER
     Dosage: 1ST CYCLE - 14OCT03  DOSE = 30 UNITS
     Dates: start: 20031021, end: 20031021
  2. CISPLATIN [Suspect]
     Indication: TESTIS CANCER
     Dosage: 1ST CYCLE- 14OCT03
     Dates: start: 20031021, end: 20031021
  3. ETOPOSIDE [Suspect]
     Indication: TESTIS CANCER
     Dosage: 1ST CYCLE- 14OCT03
     Dates: start: 20031021, end: 20031021

REACTIONS (1)
  - DERMATITIS [None]
